FAERS Safety Report 10273071 (Version 1)
Quarter: 2014Q3

REPORT INFORMATION
  Report Type: Spontaneous
  Country: CL (occurrence: CL)
  Receive Date: 20140702
  Receipt Date: 20140702
  Transmission Date: 20150326
  Serious: Yes (Death, Hospitalization)
  Sender: FDA-Public Use
  Company Number: PHHY2014CL080619

PATIENT
  Age: 64 Year
  Sex: Male

DRUGS (1)
  1. AFINITOR [Suspect]
     Active Substance: EVEROLIMUS
     Indication: RENAL CANCER METASTATIC
     Dates: start: 2012, end: 201212

REACTIONS (3)
  - Weight decreased [Fatal]
  - Myocardial infarction [Fatal]
  - Dysstasia [Unknown]

NARRATIVE: CASE EVENT DATE: 20130909
